FAERS Safety Report 6930165-9 (Version None)
Quarter: 2010Q3

REPORT INFORMATION
  Report Type: 
  Country: None (occurrence: None)
  Receive Date: 20100818
  Receipt Date: 20100806
  Transmission Date: 20110219
  Serious: Yes (Death)
  Sender: FDA-Public Use
  Company Number: JP-PFIZER INC-2009154204

PATIENT
  Age: 68 Year
  Sex: Male
  Weight: 69 kg

DRUGS (10)
  1. SUNITINIB MALATE [Suspect]
     Indication: RENAL CELL CARCINOMA
     Dosage: 25 MG, 1X/DAY
     Route: 048
     Dates: start: 20060418, end: 20081218
  2. THYRADIN S [Concomitant]
     Dosage: UNK
     Route: 048
     Dates: start: 20070619, end: 20081229
  3. NU LOTAN [Concomitant]
     Dosage: UNK
     Route: 048
     Dates: start: 20080227, end: 20081229
  4. ALLOPURINOL [Concomitant]
     Dosage: UNK
     Route: 048
     Dates: start: 20071218, end: 20081229
  5. TAKEPRON [Concomitant]
     Dosage: UNK
     Route: 048
     Dates: start: 20080715, end: 20081229
  6. ARTIST [Concomitant]
     Dosage: UNK
     Route: 048
     Dates: start: 20080805, end: 20081229
  7. WARFARIN POTASSIUM [Concomitant]
     Dosage: UNK
     Route: 048
     Dates: start: 20080606, end: 20081229
  8. FRANDOL [Concomitant]
     Dosage: UNK
     Route: 062
     Dates: start: 20080805, end: 20081229
  9. MEVALOTIN [Concomitant]
     Dosage: UNK
     Route: 048
     Dates: start: 20081024, end: 20081229
  10. URSO 250 [Concomitant]
     Route: 048
     Dates: start: 20081205, end: 20081229

REACTIONS (1)
  - SUDDEN DEATH [None]
